FAERS Safety Report 9765030 (Version 1)
Quarter: 2013Q4

REPORT INFORMATION
  Report Type: Spontaneous
  Country: TR (occurrence: TR)
  Receive Date: 20131217
  Receipt Date: 20131217
  Transmission Date: 20140711
  Serious: Yes (Hospitalization, Disabling, Other)
  Sender: FDA-Public Use
  Company Number: TR-ROXANE LABORATORIES, INC.-2013-RO-01950RO

PATIENT
  Age: 46 Year
  Sex: Female

DRUGS (3)
  1. LITHIUM CARBONATE [Suspect]
     Indication: BIPOLAR DISORDER
  2. PAROXETINE [Suspect]
     Indication: BIPOLAR DISORDER
  3. ANTIBIOTIC [Concomitant]
     Indication: URINARY TRACT INFECTION

REACTIONS (12)
  - Neurotoxicity [Recovered/Resolved with Sequelae]
  - Quadriparesis [Not Recovered/Not Resolved]
  - Critical illness polyneuropathy [Recovered/Resolved with Sequelae]
  - Peripheral motor neuropathy [Recovered/Resolved with Sequelae]
  - Urinary tract infection [Unknown]
  - Dehydration [Unknown]
  - Hypotension [Unknown]
  - Respiratory failure [Unknown]
  - Renal failure [Unknown]
  - Iron deficiency anaemia [Unknown]
  - Pneumonia [Unknown]
  - Mutism [Not Recovered/Not Resolved]
